FAERS Safety Report 5932788-2 (Version None)
Quarter: 2008Q4

REPORT INFORMATION
  Report Type: 
  Country: None (occurrence: None)
  Receive Date: 20081028
  Receipt Date: 20081023
  Transmission Date: 20090506
  Serious: Yes (Hospitalization)
  Sender: FDA-Public Use
  Company Number: B0539627A

PATIENT
  Age: 84 Year
  Sex: Female

DRUGS (15)
  1. ZOVIRAX [Suspect]
     Indication: ENCEPHALITIS HERPES
     Dosage: 15MGK THREE TIMES PER DAY
     Route: 042
     Dates: start: 20080208, end: 20080212
  2. AUGMENTIN '125' [Suspect]
     Dosage: 1G THREE TIMES PER DAY
     Route: 065
     Dates: start: 20080211, end: 20080213
  3. LOVENOX [Suspect]
     Indication: DRUG USE FOR UNKNOWN INDICATION
     Dosage: 4000IUAX PER DAY
     Route: 058
     Dates: start: 20080211
  4. CALCIPARINE [Suspect]
     Indication: DRUG USE FOR UNKNOWN INDICATION
     Dosage: .2ML TWICE PER DAY
     Route: 058
     Dates: start: 20080212
  5. BISOPROLOL FUMARATE [Suspect]
     Dosage: 1UNIT PER DAY
     Route: 048
     Dates: end: 20080211
  6. FLODIL [Suspect]
     Dosage: 5MG PER DAY
     Route: 048
     Dates: end: 20080211
  7. TRIMETAZIDINE [Suspect]
     Indication: DRUG USE FOR UNKNOWN INDICATION
     Dosage: 1UNIT TWICE PER DAY
     Route: 048
     Dates: end: 20080211
  8. ATARAX [Suspect]
     Indication: AGITATION
     Dosage: 100MG PER DAY
     Route: 042
     Dates: start: 20080211
  9. COAGULATION FACTORS [Suspect]
     Indication: DRUG USE FOR UNKNOWN INDICATION
     Dosage: 1UNIT PER DAY
     Route: 042
     Dates: start: 20080208
  10. PREVISCAN [Concomitant]
     Indication: ARRHYTHMIA
     Dosage: .5UNIT PER DAY
     Route: 048
  11. ROCEPHIN [Concomitant]
     Dates: start: 20080213
  12. DOLIPRANE [Concomitant]
     Dates: end: 20080210
  13. TIAPRIDAL [Concomitant]
     Dates: start: 20080208, end: 20080208
  14. AVLOCARDYL [Concomitant]
     Route: 065
  15. NEO-MERCAZOLE TAB [Concomitant]
     Route: 065

REACTIONS (1)
  - THROMBOCYTOPENIA [None]
